FAERS Safety Report 24862600 (Version 2)
Quarter: 2025Q1

REPORT INFORMATION
  Report Type: Report from Study
  Country: US (occurrence: US)
  Receive Date: 20250120
  Receipt Date: 20250227
  Transmission Date: 20250409
  Serious: Yes (Hospitalization)
  Sender: AVADEL CNS PHARMACEUTICALS, LLC
  Company Number: US-AVADEL CNS PHARMACEUTICALS, LLC-2025AVA00050

PATIENT
  Age: 21 Year
  Sex: Male

DRUGS (1)
  1. LUMRYZ [Suspect]
     Active Substance: SODIUM OXYBATE
     Route: 048
     Dates: start: 20241012

REACTIONS (22)
  - Depressed level of consciousness [Unknown]
  - Electrocardiogram QRS complex prolonged [Unknown]
  - Anion gap increased [Unknown]
  - Hypoglycaemia [Unknown]
  - Euphoric mood [Unknown]
  - Areflexia [Unknown]
  - Hypotension [Unknown]
  - Hypernatraemia [Unknown]
  - Alkalosis [Unknown]
  - Hypervolaemia [Unknown]
  - Suicide attempt [Unknown]
  - Agitation [Unknown]
  - Intentional overdose [Unknown]
  - Hallucination [Unknown]
  - Delirium [Unknown]
  - Sudden onset of sleep [Unknown]
  - Enuresis [Unknown]
  - Myoclonus [Unknown]
  - Hypothermia [Unknown]
  - Acidosis [Unknown]
  - Cheyne-Stokes respiration [Unknown]
  - Dyskinesia [Unknown]

NARRATIVE: CASE EVENT DATE: 20241012
